FAERS Safety Report 8935574 (Version 1)
Quarter: 2012Q4

REPORT INFORMATION
  Report Type: Spontaneous
  Country: US (occurrence: None)
  Receive Date: 20121128
  Receipt Date: 20121128
  Transmission Date: 20130627
  Serious: Yes (Disabling)
  Sender: FDA-Public Use
  Company Number: None

PATIENT
  Age: 61 Year
  Sex: Male
  Weight: 74.6 kg

DRUGS (5)
  1. PEGINTERFERON [Suspect]
     Indication: HEPATITIS C
     Route: 058
     Dates: start: 20120830, end: 20121025
  2. PEGINTERFERON [Suspect]
     Route: 058
     Dates: start: 20120830, end: 20121025
  3. PEGINTERFERON [Suspect]
     Indication: HEPATITIS C
  4. PEGINTERFERON [Suspect]
  5. TELAPREVIR [Suspect]
     Indication: HEPATITIS C
     Route: 048
     Dates: start: 20121002, end: 20121025

REACTIONS (6)
  - Fatigue [None]
  - Influenza like illness [None]
  - Tremor [None]
  - Nausea [None]
  - Vomiting [None]
  - Depression [None]
